FAERS Safety Report 6330616-7 (Version None)
Quarter: 2009Q3

REPORT INFORMATION
  Report Type: 
  Country: None (occurrence: None)
  Receive Date: 20090827
  Receipt Date: 20090825
  Transmission Date: 20100115
  Serious: Yes (Hospitalization, Other)
  Sender: FDA-Public Use
  Company Number: NL-BAYER-200923343GPV

PATIENT
  Age: 66 Year
  Sex: Male

DRUGS (7)
  1. NEXAVAR [Suspect]
     Indication: HEPATIC CANCER METASTATIC
     Dosage: TOTAL DAILY DOSE: 200 MG  UNIT DOSE: 200 MG
     Route: 048
     Dates: start: 20090528, end: 20090602
  2. NEXAVAR [Suspect]
     Dosage: TOTAL DAILY DOSE: 400 MG  UNIT DOSE: 200 MG
     Route: 048
     Dates: start: 20090603, end: 20090601
  3. NEXAVAR [Suspect]
     Dosage: TOTAL DAILY DOSE: 200 MG  UNIT DOSE: 200 MG
     Route: 048
     Dates: start: 20090618, end: 20090824
  4. ALDACTONE [Suspect]
     Indication: DIURETIC THERAPY
     Dosage: 100 MG
     Dates: end: 20090101
  5. OMEPRAZOL [Concomitant]
     Indication: PROPHYLAXIS
     Dosage: 40 MG (NOS)
  6. NASUMEL (ARACHIS OLEUM, CERA ALBA, GLYCERYL OLEATE, MEL, AQUA) [Concomitant]
     Indication: PROPHYLAXIS
     Route: 045
  7. VIDISIC [Concomitant]
     Route: 031

REACTIONS (2)
  - CONFUSIONAL STATE [None]
  - NEOPLASM PROGRESSION [None]
